FAERS Safety Report 16863167 (Version 2)
Quarter: 2019Q4

REPORT INFORMATION
  Report Type: Spontaneous
  Country: JP (occurrence: JP)
  Receive Date: 20190927
  Receipt Date: 20191210
  Transmission Date: 20200122
  Serious: Yes (Life-Threatening, Hospitalization, Other)
  Sender: FDA-Public Use
  Company Number: JP-009507513-1909JPN001966J

PATIENT
  Age: 67 Year
  Sex: Male
  Weight: 57 kg

DRUGS (4)
  1. KEYTRUDA [Suspect]
     Active Substance: PEMBROLIZUMAB
     Indication: NON-SMALL CELL LUNG CANCER
     Dosage: 200 MILLIGRAM, Q3W
     Route: 041
     Dates: start: 20190814, end: 20190909
  2. ALIMTA [Concomitant]
     Active Substance: PEMETREXED DISODIUM
     Indication: NON-SMALL CELL LUNG CANCER
     Dosage: 830 MILLIGRAM, Q3W
     Route: 041
     Dates: start: 20190814, end: 20190909
  3. PANVITAN [Concomitant]
     Active Substance: VITAMINS
     Dosage: 1 GRAM, QD
     Route: 048
     Dates: start: 20190807
  4. CARBOPLATIN. [Concomitant]
     Active Substance: CARBOPLATIN
     Indication: NON-SMALL CELL LUNG CANCER
     Dosage: 500 MILLIGRAM, Q3W
     Route: 041
     Dates: start: 20190814, end: 20190909

REACTIONS (5)
  - Bone marrow failure [Unknown]
  - Sepsis [Recovered/Resolved]
  - Enterocolitis [Unknown]
  - Acute kidney injury [Recovered/Resolved]
  - Febrile neutropenia [Unknown]

NARRATIVE: CASE EVENT DATE: 20190914
